FAERS Safety Report 23848629 (Version 1)
Quarter: 2024Q2

REPORT INFORMATION
  Report Type: Spontaneous
  Country: US (occurrence: US)
  Receive Date: 20240513
  Receipt Date: 20240513
  Transmission Date: 20240716
  Serious: No
  Sender: FDA-Public Use
  Company Number: US-PERRIGO-23US012214

PATIENT
  Sex: Female
  Weight: 104.31 kg

DRUGS (3)
  1. MICONAZOLE 3 COMBINATION PACK [Suspect]
     Active Substance: MICONAZOLE NITRATE
     Indication: Vulvovaginal mycotic infection
     Dosage: 200 MG, QD
     Route: 067
     Dates: start: 20231015, end: 20231018
  2. AZO YEAST [Concomitant]
     Active Substance: EUPATORIUM PERFOLIATUM FLOWERING TOP\HOMEOPATHICS\VISCUM ALBUM LEAF
     Indication: Vulvovaginal mycotic infection
     Dosage: UNKNOWN, PRN
     Route: 065
  3. MULTI VITAMIN [ASCORBIC ACID;COLECALCIFEROL;NICOTINAMIDE;PANTHENOL;PYR [Concomitant]
     Indication: Supplementation therapy
     Dosage: UNK
     Route: 065

REACTIONS (1)
  - Drug ineffective [Unknown]
